FAERS Safety Report 5011860-8 (Version None)
Quarter: 2006Q2

REPORT INFORMATION
  Report Type: 
  Country: None (occurrence: None)
  Receive Date: 20060526
  Receipt Date: 20060418
  Transmission Date: 20061013
  Serious: Yes (Hospitalization)
  Sender: FDA-Public Use
  Company Number: PHBS2006JP05869

PATIENT
  Age: 40 Year
  Sex: Male
  Weight: 98 kg

DRUGS (10)
  1. TOFRANIL [Suspect]
     Indication: DEPRESSION
     Dosage: 25 MG, TID
     Route: 048
     Dates: start: 20040101, end: 20060401
  2. ANAFRANIL [Concomitant]
     Dosage: 150 MG/D
     Route: 048
  3. TRYPTANOL [Concomitant]
     Route: 048
     Dates: start: 20040101
  4. TETRAMIDE [Concomitant]
     Route: 048
     Dates: start: 20040101
  5. LIMAS [Concomitant]
     Route: 048
     Dates: start: 20040101
  6. UBRETID [Concomitant]
     Route: 048
     Dates: start: 20040101
  7. TOLEDOMIN [Concomitant]
     Dosage: 60 MG/D
     Route: 048
     Dates: start: 20040101, end: 20060401
  8. HALCION [Concomitant]
     Route: 048
     Dates: start: 20040101
  9. MYSLEE [Concomitant]
     Route: 048
     Dates: start: 20040101
  10. LUDIOMIL [Concomitant]
     Route: 048
     Dates: start: 20040101

REACTIONS (13)
  - ALANINE AMINOTRANSFERASE INCREASED [None]
  - ASPARTATE AMINOTRANSFERASE INCREASED [None]
  - BLOOD ALKALINE PHOSPHATASE INCREASED [None]
  - BLOOD LACTATE DEHYDROGENASE INCREASED [None]
  - CARDIAC FAILURE [None]
  - CHEST X-RAY ABNORMAL [None]
  - CONGESTIVE CARDIOMYOPATHY [None]
  - COUGH [None]
  - DYSPNOEA EXERTIONAL [None]
  - ECHOCARDIOGRAM ABNORMAL [None]
  - GAMMA-GLUTAMYLTRANSFERASE ABNORMAL [None]
  - PRODUCTIVE COUGH [None]
  - VENTRICULAR DYSFUNCTION [None]
